FAERS Safety Report 5128075-5 (Version None)
Quarter: 2006Q4

REPORT INFORMATION
  Report Type: 
  Country: None (occurrence: None)
  Receive Date: 20061010
  Receipt Date: 20060420
  Transmission Date: 20070319
  Serious: Yes (Disabling)
  Sender: FDA-Public Use
  Company Number: 2006-141483-NL

PATIENT
  Age: 46 Year
  Sex: Female

DRUGS (5)
  1. MIRTAZAPINE [Suspect]
     Indication: ANXIETY
     Dosage: 15 MG/30 MG, ORAL
     Route: 048
     Dates: start: 20051216, end: 20051219
  2. MIRTAZAPINE [Suspect]
     Indication: DEPRESSION
     Dosage: 15 MG/30 MG, ORAL
     Route: 048
     Dates: start: 20051216, end: 20051219
  3. MIRTAZAPINE [Suspect]
     Indication: ANXIETY
     Dosage: 15 MG/30 MG, ORAL
     Route: 048
     Dates: start: 20051219, end: 20060101
  4. MIRTAZAPINE [Suspect]
     Indication: DEPRESSION
     Dosage: 15 MG/30 MG, ORAL
     Route: 048
     Dates: start: 20051219, end: 20060101
  5. DIAZEPAM [Concomitant]

REACTIONS (9)
  - ARTHRALGIA [None]
  - BURNING SENSATION [None]
  - MOBILITY DECREASED [None]
  - MUSCLE TWITCHING [None]
  - MUSCULAR WEAKNESS [None]
  - MYALGIA [None]
  - PAIN IN EXTREMITY [None]
  - PARAESTHESIA [None]
  - TREMOR [None]
